FAERS Safety Report 15129462 (Version 6)
Quarter: 2018Q3

REPORT INFORMATION
  Report Type: Report from Study
  Country: US (occurrence: US)
  Receive Date: 20180711
  Receipt Date: 20180823
  Transmission Date: 20181010
  Serious: Yes (Hospitalization)
  Sender: FDA-Public Use
  Company Number: US-ROCHE-2149269

PATIENT
  Age: 50 Year
  Sex: Female
  Weight: 51 kg

DRUGS (31)
  1. ATEZOLIZUMAB. [Suspect]
     Active Substance: ATEZOLIZUMAB
     Indication: SMALL CELL LUNG CANCER
     Dosage: SUBSEQUENT DOSES ON: 06/FEB/2018, 27/FEB/2018, 27/MAR/2018, 17/APR/2018, 08/MAY/2018, 30/MAY/2018 AN
     Route: 042
     Dates: start: 20180116
  2. CARBOPLATIN. [Suspect]
     Active Substance: CARBOPLATIN
     Route: 042
     Dates: start: 20180327
  3. ALLOPURINOL. [Concomitant]
     Active Substance: ALLOPURINOL
     Dosage: URIC ACID PROPHYLAXIS
     Route: 048
     Dates: start: 20180103
  4. FLONASE [Concomitant]
     Active Substance: FLUTICASONE PROPIONATE
     Indication: SEASONAL ALLERGY
     Route: 061
     Dates: start: 2017
  5. VITAMIN B1 [Concomitant]
     Active Substance: THIAMINE HYDROCHLORIDE
     Indication: PROPHYLAXIS
     Dosage: GENERAL HEALTH PROPHYLAXIS
     Route: 048
     Dates: start: 20171229
  6. SODIUM ACETATE. [Concomitant]
     Active Substance: SODIUM ACETATE
     Route: 065
     Dates: start: 20171229
  7. ONDANSETRON [Concomitant]
     Active Substance: ONDANSETRON
     Indication: PROPHYLAXIS
     Dosage: PRE?CHEMOTHERAPY
     Route: 042
     Dates: start: 20180117
  8. TRAMADOL. [Concomitant]
     Active Substance: TRAMADOL
     Indication: PAIN
     Route: 048
     Dates: start: 20171228
  9. CARBOPLATIN. [Suspect]
     Active Substance: CARBOPLATIN
     Route: 042
     Dates: start: 20180227
  10. DEXAMETHASONE. [Concomitant]
     Active Substance: DEXAMETHASONE
     Indication: PROPHYLAXIS
     Dosage: PRE?CHEMOTHERAPY
     Route: 042
     Dates: start: 20180116
  11. DOCUSATE SODIUM. [Concomitant]
     Active Substance: DOCUSATE SODIUM
     Indication: CONSTIPATION
     Dosage: 1 LIQUID GEL CAPLET
     Route: 048
     Dates: start: 20171229
  12. ROLAPITANT [Concomitant]
     Active Substance: ROLAPITANT
     Indication: PROPHYLAXIS
     Dosage: PRE?CHEMOTHERAPY
     Route: 048
     Dates: start: 20180116
  13. ZOFRAN [Concomitant]
     Active Substance: ONDANSETRON HYDROCHLORIDE
     Indication: NAUSEA
     Route: 048
     Dates: start: 20171229
  14. ZYRTEC [Concomitant]
     Active Substance: CETIRIZINE HYDROCHLORIDE
     Indication: SEASONAL ALLERGY
     Route: 048
     Dates: start: 20180101
  15. MAGNESIUM CITRATE. [Concomitant]
     Active Substance: MAGNESIUM CITRATE
     Indication: CONSTIPATION
     Route: 048
     Dates: start: 20180208
  16. MILK OF MAGNESIA [Concomitant]
     Active Substance: MAGNESIUM HYDROXIDE
     Indication: CONSTIPATION
     Dosage: 1 TBSP
     Route: 048
     Dates: start: 20180208
  17. DICLOFENAC SODIC [Concomitant]
     Route: 065
     Dates: start: 201712
  18. ETOPOSIDE. [Suspect]
     Active Substance: ETOPOSIDE
     Indication: SMALL CELL LUNG CANCER
     Dosage: DOSE: 157 (UNIT NOT REPORTED), SUBSEQUENT DOSES ON: 17/JAN/2018, 18/JAN/2018, 06/FEB/2018, 07/FEB/20
     Route: 042
     Dates: start: 20180116
  19. MIRALAX [Concomitant]
     Active Substance: POLYETHYLENE GLYCOL 3350
     Indication: CONSTIPATION
     Dosage: 1 PACKET
     Route: 048
     Dates: start: 201803
  20. IBUPROFEN. [Concomitant]
     Active Substance: IBUPROFEN
     Indication: PAIN
     Route: 048
     Dates: start: 201712
  21. XANAX [Concomitant]
     Active Substance: ALPRAZOLAM
     Indication: ANXIETY
     Route: 048
     Dates: start: 201701
  22. ETOPOSIDE. [Suspect]
     Active Substance: ETOPOSIDE
     Dosage: DOSE: 157 (UNIT NOT REPORTED).
     Route: 042
     Dates: start: 20180329
  23. BISACODYL. [Concomitant]
     Active Substance: BISACODYL
     Indication: CONSTIPATION
     Route: 054
     Dates: start: 20180208
  24. PALONOSETRON HYDROCHLORIDE. [Concomitant]
     Active Substance: PALONOSETRON HYDROCHLORIDE
     Indication: PROPHYLAXIS
     Dosage: PRE?CHEMOTHERAPY
     Route: 042
     Dates: start: 20180116
  25. BLINDED TRILACICLIB [Suspect]
     Active Substance: TRILACICLIB
     Indication: SMALL CELL LUNG CANCER
     Dosage: SUBSEQUENT DOSES ON: 17/JAN/2018, 18/JAN/2018, 06/FEB/2018, 07/FEB/2018, 08/FEB/2018, 27/FEB/2018, 2
     Route: 042
     Dates: start: 20180116
  26. CARBOPLATIN. [Suspect]
     Active Substance: CARBOPLATIN
     Indication: SMALL CELL LUNG CANCER
     Route: 042
     Dates: start: 20180116
  27. CARBOPLATIN. [Suspect]
     Active Substance: CARBOPLATIN
     Route: 042
     Dates: start: 20180206
  28. ETOPOSIDE. [Suspect]
     Active Substance: ETOPOSIDE
     Dosage: DOSE: 119 (UNIT NOT REPORTED), SUBSEQUENT DOSE ON: 28/MAR/2018.
     Route: 042
     Dates: start: 20180327
  29. ATIVAN [Concomitant]
     Active Substance: LORAZEPAM
     Indication: ANXIETY
     Route: 048
     Dates: start: 20180103
  30. VOLTAREN [Concomitant]
     Active Substance: DICLOFENAC SODIUM
     Indication: PAIN
     Dosage: 1 APPLICATION
     Route: 061
     Dates: start: 201712
  31. ZOLOFT [Concomitant]
     Active Substance: SERTRALINE HYDROCHLORIDE
     Indication: ANXIETY
     Route: 048
     Dates: start: 201701

REACTIONS (1)
  - Generalised tonic-clonic seizure [Recovered/Resolved with Sequelae]

NARRATIVE: CASE EVENT DATE: 20180628
